FAERS Safety Report 5944736-X (Version None)
Quarter: 2008Q4

REPORT INFORMATION
  Report Type: 
  Country: None (occurrence: None)
  Receive Date: 20081105
  Receipt Date: 20081023
  Transmission Date: 20090506
  Serious: Yes (Life-Threatening, Hospitalization)
  Sender: FDA-Public Use
  Company Number: PAR_02396_2008

PATIENT
  Age: 15 Year
  Sex: Female
  Weight: 66 kg

DRUGS (7)
  1. CABERGOLINE [Suspect]
     Indication: HYPERPROLACTINAEMIA
     Dosage: (1.5 GM 1X/WEEK)
  2. CABERGOLINE [Suspect]
     Indication: PITUITARY TUMOUR BENIGN
     Dosage: (1.5 GM 1X/WEEK)
  3. CABERGOLINE [Suspect]
     Indication: HYPERPROLACTINAEMIA
     Dosage: (DF)
  4. CABERGOLINE [Suspect]
     Indication: PITUITARY TUMOUR BENIGN
     Dosage: (DF)
  5. CABERGOLINE [Suspect]
     Indication: HYPERPROLACTINAEMIA
     Dosage: (1 MG 1X/WEEK)
  6. CABERGOLINE [Suspect]
     Indication: PITUITARY TUMOUR BENIGN
     Dosage: (1 MG 1X/WEEK)
  7. CONJUGATED ESTROGENS [Concomitant]

REACTIONS (2)
  - PITUITARY HAEMORRHAGE [None]
  - STRESS [None]
